FAERS Safety Report 6906069-4 (Version None)
Quarter: 2010Q3

REPORT INFORMATION
  Report Type: 
  Country: None (occurrence: None)
  Receive Date: 20100804
  Receipt Date: 20100726
  Transmission Date: 20110219
  Serious: Yes (Other)
  Sender: FDA-Public Use
  Company Number: SE-WYE-H13728710

PATIENT
  Age: 60 Year
  Sex: Male

DRUGS (2)
  1. CORDARONE [Suspect]
     Indication: ATRIAL FLUTTER
     Dosage: DOSE UNKNOWN
     Route: 065
     Dates: end: 20071206
  2. CORDARONE [Suspect]
     Indication: ATRIAL FIBRILLATION

REACTIONS (6)
  - BONE PAIN [None]
  - CORNEAL DEPOSITS [None]
  - HYPERTHYROIDISM [None]
  - PAIN [None]
  - TREMOR [None]
  - WEIGHT DECREASED [None]
